FAERS Safety Report 7914779-5 (Version None)
Quarter: 2011Q4

REPORT INFORMATION
  Report Type: 
  Country: None (occurrence: None)
  Receive Date: 20111115
  Receipt Date: 20111111
  Transmission Date: 20120403
  Serious: Yes (Death)
  Sender: FDA-Public Use
  Company Number: PHEH2011US009138

PATIENT
  Sex: Female

DRUGS (3)
  1. VITAMIN D [Concomitant]
     Indication: VITAMIN D DEFICIENCY
     Dosage: 1 PILL 2 WEEKS
     Route: 048
     Dates: start: 20090101
  2. RECLAST [Suspect]
     Indication: OSTEOPOROSIS
     Route: 042
     Dates: start: 20101115
  3. METHIMAZOLE [Concomitant]
     Indication: THYROID DISORDER
     Dosage: 1/2 PILL 3 X WEEK
     Route: 048
     Dates: start: 20090101

REACTIONS (1)
  - CARDIAC ARREST [None]
